FAERS Safety Report 4289292-X (Version None)
Quarter: 2004Q1

REPORT INFORMATION
  Report Type: 
  Country: None (occurrence: None)
  Receive Date: 20040209
  Receipt Date: 20040209
  Transmission Date: 20041129
  Serious: Yes (Hospitalization)
  Sender: FDA-Public Use
  Company Number: None

PATIENT
  Age: 86 Year
  Sex: Female
  Weight: 63.5 kg

DRUGS (2)
  1. LEFLUNOMIDE 50 MG [Suspect]
     Indication: RHEUMATOID ARTHRITIS
     Dosage: 50 MG LOADIN DAILY X 3 D ORAL
     Route: 048
     Dates: start: 20030731, end: 20030802
  2. LEFLUNOMIDE 10 MG [Suspect]
     Indication: RHEUMATOID ARTHRITIS
     Dosage: 10 MG DAILY ORAL
     Route: 048
     Dates: start: 20030803, end: 20030808

REACTIONS (7)
  - ABDOMINAL PAIN UPPER [None]
  - CHOLELITHIASIS [None]
  - CHROMATURIA [None]
  - FAECES PALE [None]
  - MALAISE [None]
  - ULTRASOUND ABDOMEN ABNORMAL [None]
  - VOMITING PROJECTILE [None]
